FAERS Safety Report 7032659-7 (Version None)
Quarter: 2010Q4

REPORT INFORMATION
  Report Type: 
  Country: None (occurrence: None)
  Receive Date: 20101007
  Receipt Date: 20100922
  Transmission Date: 20110411
  Serious: Yes (Other)
  Sender: FDA-Public Use
  Company Number: PHHY2010NL43104

PATIENT
  Sex: Male

DRUGS (17)
  1. ZOMETA [Suspect]
     Dosage: 4 MG/5 ML
     Dates: start: 20100409
  2. ZOMETA [Suspect]
     Dosage: 4 MG/5 ML
     Dates: start: 20100506
  3. ZOMETA [Suspect]
     Dosage: 4 MG/5 ML
     Dates: start: 20100603
  4. ZOMETA [Suspect]
     Dosage: 4 MG/5 ML
     Dates: start: 20100701
  5. ZOMETA [Suspect]
     Dosage: 4 MG/5 ML
     Dates: start: 20100729
  6. ZOMETA [Suspect]
     Dosage: 4 MG/5 ML
     Dates: start: 20100825
  7. ZOMETA [Suspect]
     Dosage: 4 MG/5 ML
     Dates: start: 20100922
  8. OMEPRAZOLE [Concomitant]
  9. DICLOFENAC SODIUM [Concomitant]
  10. CALCIUM WITH VITAMIN D [Concomitant]
  11. SIMVASTATIN [Concomitant]
  12. BICALUTAMIDE [Concomitant]
  13. LISINOPRIL [Concomitant]
  14. METFORMINE ^MERCK^ [Concomitant]
  15. TOLBUTAMIDE [Concomitant]
  16. MOLAXOLE [Concomitant]
  17. RADIATION THERAPY [Concomitant]
     Dosage: UNK
     Dates: start: 20100917

REACTIONS (5)
  - BLOOD GLUCOSE INCREASED [None]
  - BONE PAIN [None]
  - METASTASES TO BONE [None]
  - MUSCULOSKELETAL CHEST PAIN [None]
  - MUSCULOSKELETAL PAIN [None]
